FAERS Safety Report 23655301 (Version 1)
Quarter: 2024Q1

REPORT INFORMATION
  Report Type: Spontaneous
  Country: US (occurrence: US)
  Receive Date: 20240320
  Receipt Date: 20240320
  Transmission Date: 20240410
  Serious: No
  Sender: FDA-Public Use
  Company Number: US-Merz Pharmaceuticals GmbH-24-00743

PATIENT

DRUGS (3)
  1. XEOMIN [Suspect]
     Active Substance: INCOBOTULINUMTOXINA
     Indication: Skin cosmetic procedure
  2. DYSPORT [Concomitant]
     Active Substance: ABOBOTULINUMTOXINA
     Indication: Skin cosmetic procedure
  3. BOTULINUM TOXIN TYPE A [Concomitant]
     Active Substance: BOTULINUM TOXIN TYPE A
     Indication: Skin cosmetic procedure

REACTIONS (2)
  - Therapeutic response decreased [Unknown]
  - Off label use [Unknown]
